FAERS Safety Report 4493229-8 (Version None)
Quarter: 2004Q4

REPORT INFORMATION
  Report Type: 
  Country: None (occurrence: None)
  Receive Date: 20041025
  Receipt Date: 20040406
  Transmission Date: 20050328
  Serious: No
  Sender: FDA-Public Use
  Company Number: CART-10331

PATIENT
  Age: 48 Year
  Sex: Female

DRUGS (3)
  1. CARTICEL [Suspect]
     Indication: ARTHROPATHY
     Dosage: 1 NA ONCE IS
     Dates: start: 20010406, end: 20010406
  2. BEXTRA [Concomitant]
  3. GLUCOSAMINE [Concomitant]

REACTIONS (2)
  - DISEASE PROGRESSION [None]
  - OSTEOARTHRITIS [None]
